FAERS Safety Report 6240894-0 (Version None)
Quarter: 2009Q2

REPORT INFORMATION
  Report Type: 
  Country: None (occurrence: None)
  Receive Date: 20090619
  Receipt Date: 20090608
  Transmission Date: 20091009
  Serious: No
  Sender: FDA-Public Use
  Company Number: C-09-0146-W

PATIENT
  Age: 81 Year
  Sex: Female
  Weight: 83.9154 kg

DRUGS (4)
  1. ZOLPIDEM TARTRATE [Suspect]
     Indication: INSOMNIA
     Dosage: 1/2 TAB P.O. H.S. 047
     Dates: start: 20090406, end: 20090407
  2. THYROID MEDICATION [Concomitant]
  3. LIPITOR [Concomitant]
  4. TRIAMTERENE AND HYDROCHLOROTHIAZIDE [Concomitant]

REACTIONS (3)
  - DIZZINESS [None]
  - NIGHTMARE [None]
  - PRODUCT SUBSTITUTION ISSUE [None]
